FAERS Safety Report 22324779 (Version 2)
Quarter: 2023Q2

REPORT INFORMATION
  Report Type: Spontaneous
  Country: US (occurrence: US)
  Receive Date: 20230516
  Receipt Date: 20230519
  Transmission Date: 20230721
  Serious: No
  Sender: FDA-Public Use
  Company Number: US-002147023-NVSC2023US110656

PATIENT
  Sex: Female

DRUGS (1)
  1. TRAVATAN Z [Suspect]
     Active Substance: TRAVOPROST
     Indication: Intraocular pressure test abnormal
     Dosage: UNK DRP, QD (DROP EACH EYE, PM DAILY)
     Route: 047

REACTIONS (1)
  - Product packaging quantity issue [Unknown]
